FAERS Safety Report 6061403-5 (Version None)
Quarter: 2009Q1

REPORT INFORMATION
  Report Type: 
  Country: None (occurrence: None)
  Receive Date: 20090129
  Receipt Date: 20090129
  Transmission Date: 20090719
  Serious: Yes (Life-Threatening, Hospitalization, Other)
  Sender: FDA-Public Use
  Company Number: None

PATIENT
  Age: 81 Year
  Sex: Female
  Weight: 63.5036 kg

DRUGS (1)
  1. HEPARIN [Suspect]

REACTIONS (4)
  - APPARENT LIFE THREATENING EVENT [None]
  - CARDIAC FAILURE [None]
  - POST PROCEDURAL COMPLICATION [None]
  - THROMBOSIS [None]
